FAERS Safety Report 8257956-9 (Version None)
Quarter: 2012Q2

REPORT INFORMATION
  Report Type: 
  Country: None (occurrence: None)
  Receive Date: 20120404
  Receipt Date: 20120320
  Transmission Date: 20120825
  Serious: Yes (Other)
  Sender: FDA-Public Use
  Company Number: NL-CELGENEUS-114-20785-12032326

PATIENT

DRUGS (4)
  1. THALIDOMIDE [Suspect]
     Indication: MULTIPLE MYELOMA
     Dosage: 200 MILLIGRAM
     Route: 048
  2. DEXAMETHASONE [Concomitant]
     Indication: MULTIPLE MYELOMA
     Route: 065
  3. CARFILZOMIB [Concomitant]
     Indication: MULTIPLE MYELOMA
     Route: 065
  4. CARFILZOMIB [Concomitant]
     Route: 065

REACTIONS (9)
  - RENAL FAILURE [None]
  - RESPIRATORY TRACT INFECTION [None]
  - RASH [None]
  - GASTROINTESTINAL DISORDER [None]
  - DEEP VEIN THROMBOSIS [None]
  - METABOLIC DISORDER [None]
  - TUMOUR LYSIS SYNDROME [None]
  - DRUG INTOLERANCE [None]
  - POLYNEUROPATHY [None]
